FAERS Safety Report 5924536-7 (Version None)
Quarter: 2008Q4

REPORT INFORMATION
  Report Type: 
  Country: None (occurrence: None)
  Receive Date: 20081020
  Receipt Date: 20081009
  Transmission Date: 20090506
  Serious: Yes (Hospitalization, Other)
  Sender: FDA-Public Use
  Company Number: US-ELI_LILLY_AND_COMPANY-US200810002277

PATIENT
  Sex: Female

DRUGS (5)
  1. CYMBALTA [Suspect]
     Indication: DEPRESSION
     Dosage: 60 MG, UNK
     Dates: start: 20071001
  2. MICARDIS [Concomitant]
     Indication: BLOOD PRESSURE
  3. BUSPAR [Concomitant]
     Indication: ANXIETY
  4. LUNESTA [Concomitant]
     Indication: SLEEP DISORDER
  5. BUTALBITAL [Concomitant]
     Indication: MIGRAINE

REACTIONS (4)
  - COLITIS [None]
  - DRUG INEFFECTIVE [None]
  - GASTRIC LAVAGE [None]
  - SUICIDAL IDEATION [None]
